FAERS Safety Report 12950485 (Version 2)
Quarter: 2016Q4

REPORT INFORMATION
  Report Type: Spontaneous
  Country: JP (occurrence: JP)
  Receive Date: 20161116
  Receipt Date: 20161121
  Transmission Date: 20170207
  Serious: Yes (Other)
  Sender: FDA-Public Use
  Company Number: US-ASTRAZENECA-2016SF21439

PATIENT
  Age: 19 Month
  Sex: Male

DRUGS (1)
  1. SYNAGIS [Suspect]
     Active Substance: PALIVIZUMAB
     Indication: CHRONIC RESPIRATORY FAILURE
     Route: 030
     Dates: start: 2015

REACTIONS (1)
  - Ileus [Unknown]

NARRATIVE: CASE EVENT DATE: 2016
